FAERS Safety Report 5237527-9 (Version None)
Quarter: 2007Q1

REPORT INFORMATION
  Report Type: 
  Country: None (occurrence: None)
  Receive Date: 20070213
  Receipt Date: 20070202
  Transmission Date: 20070707
  Serious: Yes (Hospitalization, Other)
  Sender: FDA-Public Use
  Company Number: US-ELI_LILLY_AND_COMPANY-US200610000981

PATIENT
  Age: 56 Year
  Sex: Male
  Weight: 126.98 kg

DRUGS (43)
  1. NEUPOGEN [Concomitant]
  2. FENTANYL [Concomitant]
  3. SALINE [Concomitant]
     Indication: NASAL CONGESTION
     Dosage: 2 UNK, AS NEEDED
     Route: 055
     Dates: start: 20000101
  4. FLONASE [Concomitant]
     Indication: NASAL CONGESTION
     Dosage: 1 UNK, AS NEEDED
     Route: 055
     Dates: start: 20060501
  5. SENNA [Concomitant]
     Indication: CONSTIPATION
     Dosage: 1 UNK, AS NEEDED
     Route: 048
     Dates: start: 20060801
  6. GLUCOPHAGE [Concomitant]
     Indication: DIABETES MELLITUS
     Dosage: 1000 MG, 2/D
     Route: 048
     Dates: start: 20020101, end: 20070108
  7. CARAFATE [Concomitant]
     Indication: GASTROOESOPHAGEAL REFLUX DISEASE
     Dosage: 1 G, 4/D
     Route: 048
     Dates: start: 20060501
  8. RANITIDINE [Concomitant]
     Indication: GASTROOESOPHAGEAL REFLUX DISEASE
     Dosage: 300 MG, 2/D
     Route: 048
     Dates: start: 20000101
  9. ASMANEX TWISTHALER [Concomitant]
     Indication: CHRONIC OBSTRUCTIVE PULMONARY DISEASE
     Dosage: 1 UNK, AS NEEDED
     Route: 055
     Dates: start: 20060808
  10. FORADIL [Concomitant]
     Indication: CHRONIC OBSTRUCTIVE PULMONARY DISEASE
     Dosage: 2 UNK, AS NEEDED
     Route: 055
     Dates: start: 20060808
  11. ALBUTEROL [Concomitant]
     Indication: CHRONIC OBSTRUCTIVE PULMONARY DISEASE
     Dosage: 2.5 UNK, 4/D
     Route: 055
     Dates: start: 20060601
  12. IPRATROPIUM BROMIDE [Concomitant]
     Indication: CHRONIC OBSTRUCTIVE PULMONARY DISEASE
     Dosage: 1 UNK, AS NEEDED
     Route: 055
     Dates: start: 20060808
  13. MUCOMYST [Concomitant]
  14. COUMADIN [Concomitant]
     Indication: PROPHYLAXIS
     Dosage: 7 MG, AS NEEDED
     Route: 048
     Dates: start: 20060519, end: 20061002
  15. COUMADIN [Concomitant]
     Dosage: 10 MG, AS NEEDED
     Route: 048
     Dates: start: 20060520, end: 20061113
  16. OXYGEN [Concomitant]
     Indication: DYSPNOEA
     Dosage: 2 LITER, OTHER
     Route: 055
     Dates: start: 20060517
  17. LOVENOX [Concomitant]
     Indication: PROPHYLAXIS
     Dosage: 120 MG, AS NEEDED
     Route: 058
     Dates: start: 20060519
  18. BYETTA [Concomitant]
     Indication: DIABETES MELLITUS
     Dosage: 5 UG, 2/D
     Route: 058
     Dates: start: 20030101, end: 20070108
  19. ROXICODONE [Concomitant]
     Indication: PAIN
     Dosage: 5 MG, AS NEEDED
     Route: 048
     Dates: start: 20060519
  20. NITROGLYCERIN [Concomitant]
     Indication: CHEST PAIN
     Dosage: 0.4 MG, AS NEEDED
     Route: 060
  21. PHENERGAN [Concomitant]
     Indication: NAUSEA
     Dosage: 25 MG, AS NEEDED
     Route: 048
     Dates: start: 20060518, end: 20060701
  22. ALLOPURINOL SODIUM [Concomitant]
     Indication: GOUT
     Dosage: 300 MG, DAILY (1/D)
     Route: 048
     Dates: start: 20060818
  23. ZOFRAN [Concomitant]
     Indication: NAUSEA
     Dosage: 8 MG, DAILY (1/D)
     Route: 048
     Dates: start: 20060525
  24. ADVAIR DISKUS 100/50 [Concomitant]
     Indication: CHRONIC OBSTRUCTIVE PULMONARY DISEASE
     Dosage: 1 UNK, 2/D
     Route: 055
  25. BIAXIN [Concomitant]
     Indication: INFECTION
     Dosage: 500 MG, DAILY (1/D)
     Route: 048
     Dates: start: 20060726, end: 20060728
  26. ZITHROMYCIN [Concomitant]
     Indication: INFECTION
     Dosage: 1 UNK, DAILY (1/D)
     Route: 048
     Dates: start: 20060728, end: 20060804
  27. KEFLEX                                  /UNK/ [Concomitant]
     Indication: INFECTION
     Dosage: 500 MG, 3/D
     Route: 048
     Dates: start: 20060807, end: 20060808
  28. LEXAPRO [Concomitant]
     Indication: DEPRESSION
     Dosage: 10 MG, DAILY (1/D)
     Route: 048
     Dates: start: 20060818, end: 20060908
  29. LEXAPRO [Concomitant]
     Dosage: 10 MG, 2/D
     Route: 048
     Dates: start: 20060908
  30. ANZEMET [Concomitant]
     Indication: PROPHYLAXIS
     Dosage: 100 MG, AS NEEDED
     Route: 042
     Dates: start: 20040629, end: 20060908
  31. ZOMETA [Concomitant]
     Indication: METASTASES TO BONE
     Dosage: 4 MG, AS NEEDED
     Route: 042
     Dates: start: 20060728
  32. SOLU-MEDROL [Concomitant]
     Indication: DYSPNOEA
     Dosage: 40 MG, AS NEEDED
     Route: 042
     Dates: start: 20060823, end: 20060823
  33. SALINE [Concomitant]
     Indication: DEHYDRATION
     Dosage: 1000 ML, AS NEEDED
     Route: 042
     Dates: start: 20060823, end: 20060823
  34. HUMALOG [Concomitant]
     Indication: DIABETES MELLITUS
     Dosage: UNK, AS NEEDED
     Route: 058
     Dates: start: 20030101, end: 20070101
  35. BENADRYL [Concomitant]
     Indication: RESTLESSNESS
     Dosage: 25 MG, AS NEEDED
     Route: 048
  36. ALEVE [Concomitant]
     Indication: ARTHRITIS
     Dosage: 2 UNK, AS NEEDED
     Route: 048
     Dates: end: 20060701
  37. LASIX [Concomitant]
     Indication: OEDEMA
     Dosage: 40 MG, DAILY (1/D)
     Route: 048
     Dates: start: 20060901, end: 20061124
  38. ALIMTA [Suspect]
     Indication: NON-SMALL CELL LUNG CANCER STAGE IV
     Dosage: 1200 MG, UNK
     Route: 042
     Dates: start: 20060728, end: 20060908
  39. FOLIC ACID [Concomitant]
     Indication: VITAMIN SUPPLEMENTATION
     Dosage: 1 MG, DAILY (1/D)
     Route: 048
     Dates: start: 20060724, end: 20061002
  40. VITAMIN B-12 [Concomitant]
     Indication: VITAMIN SUPPLEMENTATION
     Dosage: 100 UG, OTHER
     Route: 030
     Dates: start: 20060728, end: 20060908
  41. DECADRON [Concomitant]
     Indication: PROPHYLAXIS
     Dosage: 8 MG, OTHER
     Route: 048
     Dates: start: 20060724, end: 20061002
  42. DECADRON [Concomitant]
     Dosage: 10 MG, AS NEEDED
     Route: 042
     Dates: start: 20040629, end: 20060908
  43. PREDNISONE [Concomitant]
     Indication: CHRONIC OBSTRUCTIVE PULMONARY DISEASE
     Dosage: 10 MG, DAILY (1/D)
     Route: 048
     Dates: start: 20060826, end: 20060922

REACTIONS (7)
  - ALVEOLITIS ALLERGIC [None]
  - CARDIAC FAILURE [None]
  - CARDIAC VALVE DISEASE [None]
  - DRY MOUTH [None]
  - EJECTION FRACTION DECREASED [None]
  - PULMONARY HYPERTENSION [None]
  - WEIGHT INCREASED [None]
